FAERS Safety Report 10748654 (Version 1)
Quarter: 2015Q1

REPORT INFORMATION
  Report Type: Spontaneous
  Country: US (occurrence: None)
  Receive Date: 20150128
  Receipt Date: 20150128
  Transmission Date: 20150721
  Serious: No
  Sender: FDA-Public Use
  Company Number: None

PATIENT
  Age: 7 Year
  Sex: Male

DRUGS (2)
  1. SINGULAIR [Suspect]
     Active Substance: MONTELUKAST SODIUM
     Indication: ASTHMA
     Dosage: 1 PILL, AT BEDTIME, TAKEN BY MOUTH
     Route: 048
     Dates: start: 20140701, end: 20150113
  2. SINGULAIR [Suspect]
     Active Substance: MONTELUKAST SODIUM
     Indication: MULTIPLE ALLERGIES
     Dosage: 1 PILL, AT BEDTIME, TAKEN BY MOUTH
     Route: 048
     Dates: start: 20140701, end: 20150113

REACTIONS (4)
  - Suicidal ideation [None]
  - Fear [None]
  - Insomnia [None]
  - Self-injurious ideation [None]

NARRATIVE: CASE EVENT DATE: 20150114
